FAERS Safety Report 5130093-8 (Version None)
Quarter: 2006Q4

REPORT INFORMATION
  Report Type: 
  Country: None (occurrence: None)
  Receive Date: 20061013
  Receipt Date: 20061009
  Transmission Date: 20070319
  Serious: Yes (Other)
  Sender: FDA-Public Use
  Company Number: S06-FRA-03944-01

PATIENT
  Age: 70 Year
  Sex: Female

DRUGS (2)
  1. SEROPLEX (ESCTALOPRAM) [Suspect]
     Indication: MAJOR DEPRESSION
     Dosage: 5 MG QD PO
     Route: 048
     Dates: start: 20060918
  2. SEROPLEX (ESCTALOPRAM) [Suspect]
     Indication: SOCIAL PHOBIA
     Dosage: 5 MG QD PO
     Route: 048
     Dates: start: 20060918

REACTIONS (3)
  - COUGH [None]
  - EXTRASYSTOLES [None]
  - NERVOUS SYSTEM DISORDER [None]
